FAERS Safety Report 6494084-7 (Version None)
Quarter: 2009Q4

REPORT INFORMATION
  Report Type: 
  Country: None (occurrence: None)
  Receive Date: 20091214
  Receipt Date: 20081223
  Transmission Date: 20100525
  Serious: No
  Sender: FDA-Public Use
  Company Number: US-BRISTOL-MYERS SQUIBB COMPANY-14452866

PATIENT
  Age: 56 Year
  Sex: Male

DRUGS (6)
  1. ABILIFY [Suspect]
     Indication: BIPOLAR DISORDER
  2. ZYPREXA [Suspect]
  3. SEROQUEL [Suspect]
  4. WARFARIN SODIUM [Concomitant]
  5. LIPITOR [Concomitant]
  6. LANTUS [Concomitant]

REACTIONS (1)
  - BLOOD GLUCOSE INCREASED [None]
